FAERS Safety Report 7777808-8 (Version None)
Quarter: 2011Q3

REPORT INFORMATION
  Report Type: 
  Country: None (occurrence: None)
  Receive Date: 20110926
  Receipt Date: 20110912
  Transmission Date: 20111222
  Serious: No
  Sender: FDA-Public Use
  Company Number: US-BIOGENIDEC-2011BI020185

PATIENT
  Age: 60 Year
  Sex: Female

DRUGS (2)
  1. TYSABRI [Suspect]
     Route: 042
     Dates: start: 20080611, end: 20080806
  2. TYSABRI [Suspect]
     Indication: MULTIPLE SCLEROSIS
     Route: 042
     Dates: start: 20110502, end: 20110531

REACTIONS (5)
  - BLOOD PRESSURE INCREASED [None]
  - FLUSHING [None]
  - HYPERSENSITIVITY [None]
  - TREMOR [None]
  - BACK PAIN [None]
